FAERS Safety Report 10712834 (Version 2)
Quarter: 2015Q1

REPORT INFORMATION
  Report Type: Spontaneous
  Country: JP (occurrence: JP)
  Receive Date: 20150115
  Receipt Date: 20150213
  Transmission Date: 20150721
  Serious: Yes (Disabling, Other)
  Sender: FDA-Public Use
  Company Number: JP-ELI_LILLY_AND_COMPANY-JP201412005863

PATIENT
  Age: 45 Year
  Sex: Male

DRUGS (44)
  1. HALCION [Concomitant]
     Active Substance: TRIAZOLAM
     Indication: PRODUCT USED FOR UNKNOWN INDICATION
     Dosage: 0.25 MG, UNK
     Route: 048
     Dates: start: 20070803
  2. LIMAS [Concomitant]
     Active Substance: LITHIUM CARBONATE
     Indication: PRODUCT USED FOR UNKNOWN INDICATION
     Dosage: 400 MG, UNK
     Route: 048
     Dates: start: 20070803, end: 20081106
  3. BENZALIN                           /00036201/ [Concomitant]
     Active Substance: NITRAZEPAM
     Indication: PRODUCT USED FOR UNKNOWN INDICATION
     Dosage: 10 MG, UNK
     Route: 048
     Dates: start: 20080111
  4. SEPAZON [Concomitant]
     Active Substance: CLOXAZOLAM
     Dosage: 4 MG, UNK
     Route: 048
     Dates: start: 20081212, end: 20090312
  5. REMERON [Concomitant]
     Active Substance: MIRTAZAPINE
     Dosage: 30 MG, UNK
     Route: 048
     Dates: start: 20100105
  6. GASTER [Concomitant]
     Active Substance: FAMOTIDINE
     Indication: PRODUCT USED FOR UNKNOWN INDICATION
     Dosage: 20 MG, UNK
     Route: 048
     Dates: start: 20070803
  7. TOLEDOMIN [Concomitant]
     Active Substance: MILNACIPRAN HYDROCHLORIDE
     Indication: PRODUCT USED FOR UNKNOWN INDICATION
     Dosage: 50 MG, UNK
     Route: 048
     Dates: start: 20071102, end: 20071129
  8. TOLEDOMIN [Concomitant]
     Active Substance: MILNACIPRAN HYDROCHLORIDE
     Dosage: 80 MG, UNK
     Route: 048
     Dates: start: 20081003, end: 20081106
  9. TOLEDOMIN [Concomitant]
     Active Substance: MILNACIPRAN HYDROCHLORIDE
     Dosage: 50 MG, UNK
     Route: 048
     Dates: start: 20081212, end: 20090312
  10. DEPAKENE [Concomitant]
     Active Substance: VALPROIC ACID
     Indication: PRODUCT USED FOR UNKNOWN INDICATION
     Dosage: 400 MG, UNK
     Route: 048
     Dates: start: 20081212, end: 20091013
  11. AMOXAN [Concomitant]
     Active Substance: AMOXAPINE
     Indication: PRODUCT USED FOR UNKNOWN INDICATION
     Dosage: 150 MG, UNK
     Route: 048
     Dates: start: 20070803, end: 20070920
  12. AMOXAN [Concomitant]
     Active Substance: AMOXAPINE
     Dosage: 200 MG, UNK
     Route: 048
     Dates: start: 20070821
  13. SEDIEL [Concomitant]
     Active Substance: TANDOSPIRONE
     Dosage: 40 MG, UNK
     Route: 048
     Dates: start: 20071102
  14. TOLEDOMIN [Concomitant]
     Active Substance: MILNACIPRAN HYDROCHLORIDE
     Dosage: 100 MG, UNK
     Route: 048
     Dates: start: 20090313, end: 20100104
  15. RHYTHMY [Concomitant]
     Active Substance: RILMAZAFONE HYDROCHLORIDE
     Indication: PRODUCT USED FOR UNKNOWN INDICATION
     Dosage: 2 MG, UNK
     Route: 048
     Dates: start: 20071130
  16. RIVOTRIL [Concomitant]
     Active Substance: CLONAZEPAM
     Indication: PRODUCT USED FOR UNKNOWN INDICATION
     Dosage: 1 MG, UNK
     Route: 048
     Dates: start: 20090731
  17. LANDSEN [Concomitant]
     Active Substance: CLONAZEPAM
     Indication: PRODUCT USED FOR UNKNOWN INDICATION
     Dosage: 2 MG, UNK
     Route: 048
     Dates: start: 20100319
  18. SEROQUEL [Concomitant]
     Active Substance: QUETIAPINE FUMARATE
     Dosage: 75 MG, UNK
     Route: 048
     Dates: start: 20100507, end: 20100603
  19. ZYPREXA [Suspect]
     Active Substance: OLANZAPINE
     Dosage: 5 MG, UNK
     Route: 048
     Dates: start: 20070809
  20. ATARAX [Concomitant]
     Active Substance: HYDROXYZINE\HYDROXYZINE HYDROCHLORIDE
     Indication: PRODUCT USED FOR UNKNOWN INDICATION
     Dosage: 25 MG, UNK
     Dates: start: 20070809
  21. DOGMATYL [Concomitant]
     Active Substance: SULPIRIDE
     Indication: PRODUCT USED FOR UNKNOWN INDICATION
     Dosage: 100 MG, UNK
     Route: 048
     Dates: start: 20070921
  22. SEDIEL [Concomitant]
     Active Substance: TANDOSPIRONE
     Indication: PRODUCT USED FOR UNKNOWN INDICATION
     Dosage: 20 MG, UNK
     Route: 048
     Dates: start: 20071005, end: 20071101
  23. DEPAS [Concomitant]
     Active Substance: ETIZOLAM
     Indication: PRODUCT USED FOR UNKNOWN INDICATION
     Dosage: 1 MG, UNK
     Route: 048
     Dates: start: 20100305
  24. TOLEDOMIN [Concomitant]
     Active Substance: MILNACIPRAN HYDROCHLORIDE
     Dosage: 50 MG, UNK
     Route: 048
     Dates: start: 20100105
  25. MILNACIPRAN [Concomitant]
     Active Substance: MILNACIPRAN
     Indication: PRODUCT USED FOR UNKNOWN INDICATION
     Dosage: 50 MG, UNK
     Route: 048
     Dates: start: 20100319
  26. DEPAKENE [Concomitant]
     Active Substance: VALPROIC ACID
     Dosage: 600 MG, UNK
     Route: 048
     Dates: start: 20091014
  27. ROHYPNOL [Concomitant]
     Active Substance: FLUNITRAZEPAM
     Indication: PRODUCT USED FOR UNKNOWN INDICATION
     Dosage: 2 MG, UNK
     Route: 048
     Dates: start: 20070803
  28. TRYPTANOL                          /00002202/ [Concomitant]
     Active Substance: AMITRIPTYLINE
     Indication: PRODUCT USED FOR UNKNOWN INDICATION
     Dosage: 50 MG, UNK
     Route: 048
     Dates: start: 20070803, end: 20070920
  29. TOLEDOMIN [Concomitant]
     Active Substance: MILNACIPRAN HYDROCHLORIDE
     Dosage: 100 MG, UNK
     Route: 048
     Dates: start: 20081107, end: 20081211
  30. TETRAMIDE [Concomitant]
     Active Substance: MIANSERIN
     Dosage: 30 MG, UNK
     Route: 048
     Dates: start: 20091014
  31. REMERON [Concomitant]
     Active Substance: MIRTAZAPINE
     Indication: PRODUCT USED FOR UNKNOWN INDICATION
     Dosage: 15 MG, UNK
     Route: 048
     Dates: start: 20091211, end: 20100104
  32. ZYPREXA [Suspect]
     Active Substance: OLANZAPINE
     Indication: BIPOLAR DISORDER
     Dosage: 2.5 MG, UNK
     Route: 048
     Dates: start: 20070803, end: 20070808
  33. LIMAS [Concomitant]
     Active Substance: LITHIUM CARBONATE
     Dosage: 600 MG, UNK
     Route: 048
     Dates: start: 20081107, end: 20081211
  34. ALESION [Concomitant]
     Active Substance: EPINASTINE HYDROCHLORIDE
     Indication: PRODUCT USED FOR UNKNOWN INDICATION
     Dosage: 10 MG, UNK
     Route: 048
     Dates: start: 20080215
  35. SEPAZON [Concomitant]
     Active Substance: CLOXAZOLAM
     Indication: PRODUCT USED FOR UNKNOWN INDICATION
     Dosage: 2 MG, UNK
     Route: 048
     Dates: start: 20081107, end: 20081211
  36. SEROQUEL [Concomitant]
     Active Substance: QUETIAPINE FUMARATE
     Indication: PRODUCT USED FOR UNKNOWN INDICATION
     Dosage: 25 MG, UNK
     Route: 048
     Dates: start: 20100305, end: 20100506
  37. TRYPTANOL                          /00002202/ [Concomitant]
     Active Substance: AMITRIPTYLINE
     Dosage: 25 MG, UNK
     Route: 048
     Dates: start: 20070921
  38. BETAMAC                            /00056102/ [Concomitant]
     Indication: PRODUCT USED FOR UNKNOWN INDICATION
     Dosage: 100 MG, UNK
     Route: 048
     Dates: start: 20100319
  39. TOLEDOMIN [Concomitant]
     Active Substance: MILNACIPRAN HYDROCHLORIDE
     Dosage: 100 MG, UNK
     Route: 048
     Dates: start: 20071130, end: 20081002
  40. TETRAMIDE [Concomitant]
     Active Substance: MIANSERIN
     Indication: PRODUCT USED FOR UNKNOWN INDICATION
     Dosage: 20 MG, UNK
     Route: 048
     Dates: start: 20071221, end: 20091013
  41. PYRETHIA                           /00033002/ [Concomitant]
     Indication: PRODUCT USED FOR UNKNOWN INDICATION
     Dosage: 25 MG, UNK
     Route: 048
     Dates: start: 20080328
  42. SEPAZON [Concomitant]
     Active Substance: CLOXAZOLAM
     Dosage: 2 MG, UNK
     Route: 048
     Dates: start: 20090313
  43. QUAZEPAM. [Concomitant]
     Active Substance: QUAZEPAM
     Indication: PRODUCT USED FOR UNKNOWN INDICATION
     Dosage: 20 MG, UNK
     Route: 048
     Dates: start: 20100105
  44. SEROQUEL [Concomitant]
     Active Substance: QUETIAPINE FUMARATE
     Dosage: 25 MG, UNK
     Route: 048
     Dates: start: 20100604

REACTIONS (6)
  - Tardive dyskinesia [Not Recovered/Not Resolved]
  - Dystonia [Not Recovered/Not Resolved]
  - Scapula fracture [Unknown]
  - Agitation [Recovered/Resolved]
  - Rib fracture [Unknown]
  - Suicidal ideation [Recovered/Resolved]

NARRATIVE: CASE EVENT DATE: 20081212
